FAERS Safety Report 5155054-4 (Version None)
Quarter: 2006Q4

REPORT INFORMATION
  Report Type: 
  Country: None (occurrence: None)
  Receive Date: 20061120
  Receipt Date: 20061120
  Transmission Date: 20070319
  Serious: No
  Sender: FDA-Public Use
  Company Number: None

PATIENT
  Sex: Female
  Weight: 130.6359 kg

DRUGS (1)
  1. LEVOTHYROXINE SODIUM [Suspect]
     Indication: HYPOTHYROIDISM
     Dosage: 0.175 MG 1 PO DAILY
     Route: 048
     Dates: start: 20060701, end: 20061101

REACTIONS (4)
  - ALOPECIA [None]
  - CONSTIPATION [None]
  - HOT FLUSH [None]
  - UNEVALUABLE EVENT [None]
